FAERS Safety Report 7510507-6 (Version None)
Quarter: 2011Q2

REPORT INFORMATION
  Report Type: 
  Country: None (occurrence: None)
  Receive Date: 20110529
  Receipt Date: 20110518
  Transmission Date: 20111010
  Serious: Yes (Other)
  Sender: FDA-Public Use
  Company Number: FR-BRISTOL-MYERS SQUIBB COMPANY-15632474

PATIENT
  Age: 60 Year
  Sex: Male
  Weight: 61 kg

DRUGS (3)
  1. FLUOROURACIL [Suspect]
     Indication: HEAD AND NECK CANCER
     Dosage: RECENT DOSE:1MAR2011,7600MG 11JAN11-UNK,7200MG UNK-5MAR11
     Route: 042
     Dates: start: 20110111, end: 20110305
  2. CETUXIMAB [Suspect]
     Indication: HEAD AND NECK CANCER
     Dosage: RECENT DOSE:8MAR2011,750MG 11JAN11-UNK,450MG UNK-8MAR11
     Route: 042
     Dates: start: 20110111, end: 20110308
  3. CISPLATIN [Suspect]
     Indication: HEAD AND NECK CANCER
     Dosage: RECENT DOSE:1MAR2011,190MG 11JAN11-UNK,180MG UNK-1MAR11
     Route: 042
     Dates: start: 20110111, end: 20110301

REACTIONS (6)
  - VOMITING [None]
  - DECREASED APPETITE [None]
  - NAUSEA [None]
  - TOXICITY TO VARIOUS AGENTS [None]
  - ASTHENIA [None]
  - CHILLS [None]
